FAERS Safety Report 9612780 (Version 1)
Quarter: 2013Q4

REPORT INFORMATION
  Report Type: Report from Study
  Country: US (occurrence: US)
  Receive Date: 20131010
  Receipt Date: 20131010
  Transmission Date: 20140711
  Serious: Yes (Hospitalization)
  Sender: FDA-Public Use
  Company Number: PHHO2013US012830

PATIENT
  Age: 51 Year
  Sex: Male

DRUGS (25)
  1. NEORAL [Suspect]
     Indication: RENAL TRANSPLANT
     Dosage: 250 MG, UNK
     Route: 048
     Dates: start: 20060924
  2. PREDNISONE [Suspect]
     Dosage: 7.5 MG, UNK
     Route: 048
     Dates: start: 20070625
  3. CELLCEPT [Suspect]
     Dosage: 1000 MG, UNK
     Dates: start: 20070810
  4. ACETAMINOPHEN [Concomitant]
     Dates: start: 20090810
  5. DIAMOX [Concomitant]
     Dates: start: 20120926
  6. NORVASC [Concomitant]
     Dates: start: 20091019
  7. CALCITRIOL [Concomitant]
     Dates: start: 20090925
  8. PLAVIX [Concomitant]
     Dates: start: 20120629
  9. DOCUSATE [Concomitant]
     Dates: start: 20120411
  10. NEXIUM [Concomitant]
     Dates: start: 20070713
  11. FENTANYL [Concomitant]
     Dates: start: 20121111
  12. FUROSEMIDE [Concomitant]
     Dates: start: 20120928
  13. LOPID [Concomitant]
     Dates: start: 20070820
  14. HYDRALAZINE [Concomitant]
     Dates: start: 20090202
  15. LANTUS [Concomitant]
     Dates: start: 20070725
  16. INSULIN REGULAR [Concomitant]
     Dates: start: 20070725
  17. IMDUR [Concomitant]
     Dates: start: 20111007
  18. OMEGA 3 FATTY ACID [Concomitant]
     Dates: start: 20080902
  19. PERCOCET [Concomitant]
     Dates: start: 20111007
  20. SEROQUEL [Concomitant]
     Dates: start: 20070715
  21. ZOLOFT [Concomitant]
     Dates: start: 20070725
  22. ALDACTONE [Concomitant]
     Dates: start: 20120511
  23. LIPITOR [Concomitant]
     Dates: start: 20111116
  24. K-DUR [Concomitant]
     Dates: start: 20070919
  25. LYRICA [Concomitant]
     Dates: start: 20120501

REACTIONS (10)
  - Micturition urgency [Unknown]
  - Unresponsive to stimuli [Unknown]
  - Abdominal pain [Recovered/Resolved]
  - Diabetes mellitus [Recovered/Resolved]
  - Headache [Unknown]
  - Blood creatinine increased [Unknown]
  - Dysuria [Unknown]
  - Abdominal pain lower [Unknown]
  - Nausea [Unknown]
  - Vomiting [Unknown]
